FAERS Safety Report 21451350 (Version 1)
Quarter: 2022Q4

REPORT INFORMATION
  Report Type: Spontaneous
  Country: US (occurrence: US)
  Receive Date: 20221013
  Receipt Date: 20221013
  Transmission Date: 20230113
  Serious: No
  Sender: FDA-Public Use
  Company Number: US-Indivior Limited-INDV-133730-2022

PATIENT
  Age: 29 Year
  Sex: Male

DRUGS (1)
  1. BUPRENORPHINE AND NALOXONE [Suspect]
     Active Substance: BUPRENORPHINE HYDROCHLORIDE\NALOXONE HYDROCHLORIDE
     Indication: Drug use disorder
     Dosage: 24 MILLIGRAM, QD (THREE 8 MG FILM STRIPS DAILY)
     Route: 060

REACTIONS (2)
  - Abnormal dreams [Not Recovered/Not Resolved]
  - Drug dependence [Not Recovered/Not Resolved]
